FAERS Safety Report 15781816 (Version 1)
Quarter: 2019Q1

REPORT INFORMATION
  Report Type: Report from Study
  Country: US (occurrence: US)
  Receive Date: 20190102
  Receipt Date: 20190102
  Transmission Date: 20190417
  Serious: Yes (Hospitalization, Other)
  Sender: FDA-Public Use
  Company Number: US-GILEAD-2018-0382089

PATIENT
  Age: 68 Year
  Sex: Female

DRUGS (23)
  1. AMBRISENTAN [Suspect]
     Active Substance: AMBRISENTAN
     Indication: PULMONARY HYPERTENSION
     Dosage: 10 MG, QD
     Route: 065
  2. SPIRONOLACTONE. [Concomitant]
     Active Substance: SPIRONOLACTONE
  3. FAMOTIDINE. [Concomitant]
     Active Substance: FAMOTIDINE
  4. ASPIRIN (E.C.) [Concomitant]
     Active Substance: ASPIRIN
  5. BROVANA [Concomitant]
     Active Substance: ARFORMOTEROL TARTRATE
  6. CALCITRIOL. [Concomitant]
     Active Substance: CALCITRIOL
  7. LORATADINE. [Concomitant]
     Active Substance: LORATADINE
  8. ADVAIR HFA [Concomitant]
     Active Substance: FLUTICASONE PROPIONATE\SALMETEROL XINAFOATE
  9. INCRUSE ELLIPTA [Concomitant]
     Active Substance: UMECLIDINIUM BROMIDE
  10. OMEPRAZOLE. [Concomitant]
     Active Substance: OMEPRAZOLE
  11. GABAPENTIN. [Concomitant]
     Active Substance: GABAPENTIN
  12. TRAZODONE [Concomitant]
     Active Substance: TRAZODONE HYDROCHLORIDE
  13. TORSEMIDE. [Concomitant]
     Active Substance: TORSEMIDE
  14. SIMVASTATIN. [Concomitant]
     Active Substance: SIMVASTATIN
  15. SILDENAFIL. [Concomitant]
     Active Substance: SILDENAFIL
  16. XANAX [Concomitant]
     Active Substance: ALPRAZOLAM
  17. NORCO [Concomitant]
     Active Substance: ACETAMINOPHEN\HYDROCODONE BITARTRATE
  18. VALSARTAN. [Concomitant]
     Active Substance: VALSARTAN
  19. ALBUTEROL HFA [Concomitant]
     Active Substance: ALBUTEROL SULFATE
  20. ALLOPURINOL. [Concomitant]
     Active Substance: ALLOPURINOL
  21. CENTRUM FOR WOMEN [Concomitant]
     Active Substance: VITAMINS
  22. CLOPIDOGREL [Concomitant]
     Active Substance: CLOPIDOGREL BISULFATE
  23. GLUCO B [Concomitant]

REACTIONS (4)
  - Apparent death [Unknown]
  - Respiratory distress [Unknown]
  - Tracheostomy [Not Recovered/Not Resolved]
  - Malaise [Unknown]
